FAERS Safety Report 16643753 (Version 1)
Quarter: 2019Q3

REPORT INFORMATION
  Report Type: Spontaneous
  Country: US (occurrence: US)
  Receive Date: 20190729
  Receipt Date: 20190729
  Transmission Date: 20191004
  Serious: Yes (Other)
  Sender: FDA-Public Use
  Company Number: US-PRINSTON PHARMACEUTICAL INC.-2018PRN01510

PATIENT
  Age: 72 Year
  Sex: Female
  Weight: 68.71 kg

DRUGS (8)
  1. PREDNISONE. [Concomitant]
     Active Substance: PREDNISONE
  2. DIARREST [Concomitant]
  3. UNSPECIFIED MEDICATION FOR STOMACH [Concomitant]
  4. LASIX [Concomitant]
     Active Substance: FUROSEMIDE
  5. UNSPECIFIED BLOOD PRESSURE MEDICATION [Concomitant]
     Active Substance: UNSPECIFIED INGREDIENT
  6. POTASSIUM [Concomitant]
     Active Substance: POTASSIUM
  7. CLONAZEPAM. [Suspect]
     Active Substance: CLONAZEPAM
     Indication: ANXIETY
     Dosage: 1 MG, 1X/DAY
     Route: 048
     Dates: start: 2016, end: 20180919
  8. UNSPECIFIED ANTIBIOTICS [Concomitant]
     Active Substance: UNSPECIFIED INGREDIENT

REACTIONS (10)
  - Withdrawal syndrome [Unknown]
  - Balance disorder [Not Recovered/Not Resolved]
  - Feeling abnormal [Not Recovered/Not Resolved]
  - Dyskinesia [Not Recovered/Not Resolved]
  - Nail picking [Unknown]
  - Fall [Recovered/Resolved]
  - Pain [Unknown]
  - Fear [Recovered/Resolved]
  - Nervousness [Unknown]
  - Hallucination, visual [Recovered/Resolved]

NARRATIVE: CASE EVENT DATE: 201807
